FAERS Safety Report 9570399 (Version 1)
Quarter: 2013Q3

REPORT INFORMATION
  Report Type: Spontaneous
  Country: US (occurrence: US)
  Receive Date: 20130930
  Receipt Date: 20130930
  Transmission Date: 20140515
  Serious: No
  Sender: FDA-Public Use
  Company Number: US-AMGEN-USASP2013064031

PATIENT
  Age: 58 Year
  Sex: Female
  Weight: 72.56 kg

DRUGS (15)
  1. ENBREL [Suspect]
     Indication: RHEUMATOID ARTHRITIS
     Dosage: 50 MG, QWK
     Route: 058
  2. CYMBALTA [Concomitant]
     Dosage: 30 MG, UNK
  3. NEXIUM                             /01479302/ [Concomitant]
     Dosage: 20 MG, UNK
  4. KRILL OIL [Concomitant]
     Dosage: 1000 MG, UNK
  5. VITAMIN D                          /00107901/ [Concomitant]
     Dosage: 1000 UNIT, UNK
  6. BENICAR [Concomitant]
     Dosage: 40 MG, UNK
  7. VYTORIN [Concomitant]
     Dosage: 1020 MG, UNK
  8. IRON [Concomitant]
     Dosage: 50 MG, UNK
  9. FLAXSEED [Concomitant]
     Dosage: UNK
  10. OXYCONTIN [Concomitant]
     Dosage: 10 MG, UNK
  11. CALCIUM +D                         /00944201/ [Concomitant]
     Dosage: UNK
  12. MULTI VIT [Concomitant]
     Dosage: UNK
  13. OMEGA 3                            /01333901/ [Concomitant]
     Dosage: 1000 MG, UNK
  14. COQ 10 [Concomitant]
     Dosage: UNK
  15. PROBIOTIC                          /06395501/ [Concomitant]
     Dosage: UNK

REACTIONS (3)
  - Pain [Unknown]
  - Drug effect incomplete [Unknown]
  - Inflammation [Unknown]
